FAERS Safety Report 17271852 (Version 1)
Quarter: 2020Q1

REPORT INFORMATION
  Report Type: Other
  Country: NL (occurrence: NL)
  Receive Date: 20200115
  Receipt Date: 20200115
  Transmission Date: 20200409
  Serious: Yes (Death)
  Sender: FDA-Public Use
  Company Number: NL-SUNRISE PHARMACEUTICAL, INC.-2079017

PATIENT
  Age: 72 Year
  Sex: Female

DRUGS (3)
  1. BETA BLOCKER [Concomitant]
     Active Substance: UNSPECIFIED INGREDIENT
     Route: 065
  2. POLYETHYLENE GLYCOL 3350. [Suspect]
     Active Substance: POLYETHYLENE GLYCOL 3350
     Indication: BOWEL PREPARATION
     Route: 065
  3. HYDROCHLOROTHIAZIDE. [Concomitant]
     Active Substance: HYDROCHLOROTHIAZIDE
     Route: 065

REACTIONS (5)
  - Condition aggravated [Fatal]
  - Hypokalaemia [Fatal]
  - Cardiac arrest [Fatal]
  - Acidosis [Fatal]
  - Overdose [Fatal]
